FAERS Safety Report 9252224 (Version 2)
Quarter: 2013Q2

REPORT INFORMATION
  Report Type: Spontaneous
  Country: US (occurrence: US)
  Receive Date: 20130424
  Receipt Date: 20130425
  Transmission Date: 20140414
  Serious: No
  Sender: FDA-Public Use
  Company Number: US-009507513-1304USA006713

PATIENT
  Sex: Female

DRUGS (1)
  1. CLARITIN [Suspect]
     Indication: PRODUCT USED FOR UNKNOWN INDICATION
     Dosage: UNK, UNKNOWN
     Route: 048
     Dates: start: 201303

REACTIONS (1)
  - Drug ineffective [Unknown]
